FAERS Safety Report 9896268 (Version 1)
Quarter: 2014Q1

REPORT INFORMATION
  Report Type: Spontaneous
  Country: US (occurrence: US)
  Receive Date: 20140213
  Receipt Date: 20140213
  Transmission Date: 20141002
  Serious: Yes (Other)
  Sender: FDA-Public Use
  Company Number: US-BRISTOL-MYERS SQUIBB COMPANY-18804864

PATIENT
  Age: 71 Year
  Sex: Female

DRUGS (1)
  1. ORENCIA [Suspect]
     Indication: RHEUMATOID ARTHRITIS
     Dosage: LAST INF ON 26-MAR-2013:INT ON NOV12:RESUMED ON 26-FEB-2013:TWO WEEKS AT A TIME
     Route: 042
     Dates: start: 201207

REACTIONS (2)
  - Pneumonia [Unknown]
  - Drug ineffective [Unknown]
